FAERS Safety Report 4484913-0 (Version None)
Quarter: 2004Q3

REPORT INFORMATION
  Report Type: 
  Country: None (occurrence: None)
  Receive Date: 20040921
  Receipt Date: 20030806
  Transmission Date: 20050211
  Serious: Yes (Hospitalization)
  Sender: FDA-Public Use
  Company Number: 163-20785-03080281

PATIENT
  Age: 51 Year
  Sex: Female

DRUGS (14)
  1. THALOMID [Suspect]
     Indication: MULTIPLE MYELOMA
     Dosage: SEE IMAGE
     Route: 048
     Dates: start: 20020117
  2. THALOMID [Suspect]
     Indication: MULTIPLE MYELOMA
     Dosage: SEE IMAGE
     Route: 048
     Dates: start: 20020718
  3. DEXAMETHASONE [Suspect]
     Indication: MULTIPLE MYELOMA
     Dosage: 40 MG, DAILY, ORAL
     Route: 048
     Dates: start: 20030213, end: 20030216
  4. CISPLATIN [Suspect]
     Indication: MULTIPLE MYELOMA
     Dosage: 15 MG, DAILY, INTRAVENOUS
     Route: 042
     Dates: start: 20030213, end: 20030216
  5. ADRIAMYCIN PFS [Suspect]
     Indication: MULTIPLE MYELOMA
     Dosage: 7.5 MG, DAILY, INTRAVENOUS
     Route: 042
     Dates: start: 20030213, end: 20030216
  6. CYTOXAN [Suspect]
     Indication: MULTIPLE MYELOMA
     Dosage: 300 MG, DAILY, INTRAVENOUS
     Route: 042
     Dates: start: 20030213, end: 20030216
  7. ETOPOSIDE [Suspect]
     Indication: MULTIPLE MYELOMA
     Dosage: 30 MG, DAILY, INTRAVENOUS
     Route: 042
     Dates: start: 20030213, end: 20030216
  8. ACYCLOVIR [Concomitant]
  9. CALCIUM (CALCIUM) [Concomitant]
  10. NIFEREX (POLYSACCHARIDE-IRON COMPLEX) [Concomitant]
  11. FOLATE (FOLATE SODIUM) [Concomitant]
  12. LOVENOX [Concomitant]
  13. AREDIA [Concomitant]
  14. PROCRIT (ERYTHROPOIETIN) [Concomitant]

REACTIONS (19)
  - APPLICATION SITE BRUISING [None]
  - ARTHRALGIA [None]
  - CATHETER SITE INFECTION [None]
  - DEEP VEIN THROMBOSIS [None]
  - DEHYDRATION [None]
  - DIARRHOEA [None]
  - DYSPNOEA [None]
  - FEBRILE NEUTROPENIA [None]
  - HYPOAESTHESIA [None]
  - MUCOSAL INFLAMMATION [None]
  - NAUSEA [None]
  - OEDEMA PERIPHERAL [None]
  - PLATELET COUNT DECREASED [None]
  - PYREXIA [None]
  - RASH [None]
  - STAPHYLOCOCCAL INFECTION [None]
  - SYNCOPE [None]
  - VOMITING [None]
  - WHITE BLOOD CELL COUNT DECREASED [None]
